FAERS Safety Report 4283596-2 (Version None)
Quarter: 2004Q1

REPORT INFORMATION
  Report Type: 
  Country: None (occurrence: None)
  Receive Date: 20040202
  Receipt Date: 20040122
  Transmission Date: 20041129
  Serious: Yes (Other)
  Sender: FDA-Public Use
  Company Number: GB-GLAXOSMITHKLINE-B0320770A

PATIENT
  Age: 53 Year
  Sex: Male
  Weight: 92.27 kg

DRUGS (6)
  1. ZYBAN [Suspect]
     Indication: EX-SMOKER
     Dosage: 150MG TWICE PER DAY
     Route: 048
     Dates: start: 20000908, end: 20001020
  2. DOVONEX [Concomitant]
     Route: 065
     Dates: start: 19941129
  3. BENDROFLUAZIDE [Concomitant]
     Route: 065
     Dates: start: 19950522
  4. CANESTEN [Concomitant]
     Route: 065
     Dates: start: 19990610
  5. BECLOMETHASONE DIPROPIONATE [Concomitant]
     Dosage: 1PUFF TWICE PER DAY
     Route: 065
     Dates: start: 19991014
  6. AQUEOUS CREAM BP [Concomitant]
     Route: 065
     Dates: start: 19970827

REACTIONS (1)
  - PSORIASIS [None]
